FAERS Safety Report 16237686 (Version 1)
Quarter: 2019Q2

REPORT INFORMATION
  Report Type: Spontaneous
  Country: US (occurrence: US)
  Receive Date: 20190424
  Receipt Date: 20190424
  Transmission Date: 20190711
  Serious: Yes (Other)
  Sender: FDA-Public Use
  Company Number: None

PATIENT
  Age: 38 Year
  Sex: Male
  Weight: 76.5 kg

DRUGS (2)
  1. METHYLPREDNISOLONE TABLETS, USP 4MG [Suspect]
     Active Substance: METHYLPREDNISOLONE
     Indication: BACK PAIN
     Dosage: 21 TABLET(S);OTHER FREQUENCY:4 TO 1 TIMES A DAY?
     Route: 048
     Dates: start: 20190420, end: 20190422
  2. METHYLPREDNISOLONE TABLETS, USP 4MG [Suspect]
     Active Substance: METHYLPREDNISOLONE
     Indication: MUSCLE SPASMS
     Dosage: 21 TABLET(S);OTHER FREQUENCY:4 TO 1 TIMES A DAY?
     Route: 048
     Dates: start: 20190420, end: 20190422

REACTIONS (2)
  - Hiccups [None]
  - Therapy cessation [None]

NARRATIVE: CASE EVENT DATE: 20190421
